FAERS Safety Report 8695740 (Version 2)
Quarter: 2013Q4

REPORT INFORMATION
  Report Type: Spontaneous
  Country: US (occurrence: US)
  Receive Date: 20120731
  Receipt Date: 20131106
  Transmission Date: 20140711
  Serious: Yes (Disabling, Other)
  Sender: FDA-Public Use
  Company Number: US-009507513-1207USA010521

PATIENT
  Sex: Female

DRUGS (2)
  1. ZOCOR [Suspect]
     Dosage: 20 MG, QD
     Route: 048
  2. THYROID [Concomitant]

REACTIONS (6)
  - Gait disturbance [Unknown]
  - Joint swelling [Unknown]
  - Oedema peripheral [Unknown]
  - Pain [Unknown]
  - Musculoskeletal pain [Unknown]
  - Blood urine present [Unknown]
